FAERS Safety Report 8802775 (Version 2)
Quarter: 2015Q3

REPORT INFORMATION
  Report Type: Report from Study
  Country: US (occurrence: US)
  Receive Date: 20120921
  Receipt Date: 20150731
  Transmission Date: 20151125
  Serious: Yes (Death)
  Sender: FDA-Public Use
  Company Number: US-ROCHE-1104329

PATIENT
  Sex: Female
  Weight: 43 kg

DRUGS (16)
  1. AVASTIN [Suspect]
     Active Substance: BEVACIZUMAB
     Route: 065
  2. VITAMIN B12 [Concomitant]
     Active Substance: CYANOCOBALAMIN
     Route: 065
  3. AVASTIN [Suspect]
     Active Substance: BEVACIZUMAB
     Indication: MALIGNANT RESPIRATORY TRACT NEOPLASM
     Route: 042
  4. ROCEPHIN [Concomitant]
     Active Substance: CEFTRIAXONE SODIUM
     Route: 042
  5. NEUPOGEN [Concomitant]
     Active Substance: FILGRASTIM
     Route: 058
  6. ALOXI [Concomitant]
     Active Substance: PALONOSETRON HYDROCHLORIDE
     Route: 065
  7. NAVELBINE [Concomitant]
     Active Substance: VINORELBINE TARTRATE
     Route: 065
  8. MEGACE [Concomitant]
     Active Substance: MEGESTROL ACETATE
     Route: 048
  9. ARANESP [Concomitant]
     Active Substance: DARBEPOETIN ALFA
     Route: 058
  10. ALIMTA [Concomitant]
     Active Substance: PEMETREXED DISODIUM
     Route: 042
  11. TAXOTERE [Concomitant]
     Active Substance: DOCETAXEL
     Route: 065
  12. HEPARIN [Concomitant]
     Active Substance: HEPARIN SODIUM
  13. DECADRON [Concomitant]
     Active Substance: DEXAMETHASONE
     Route: 048
  14. BENADRYL [Concomitant]
     Active Substance: DIPHENHYDRAMINE HYDROCHLORIDE
     Route: 065
  15. LEVAQUIN [Concomitant]
     Active Substance: LEVOFLOXACIN
     Route: 048
  16. CARBOPLATIN. [Concomitant]
     Active Substance: CARBOPLATIN
     Route: 065

REACTIONS (12)
  - Death [Fatal]
  - Night sweats [Unknown]
  - Back pain [Unknown]
  - Muscular weakness [Unknown]
  - Dysuria [Unknown]
  - Decreased appetite [Unknown]
  - Diarrhoea [Unknown]
  - Neck pain [Unknown]
  - Stomatitis [Unknown]
  - Pain [Unknown]
  - Nausea [Unknown]
  - Off label use [Unknown]
